FAERS Safety Report 4286153-7 (Version None)
Quarter: 2004Q1

REPORT INFORMATION
  Report Type: 
  Country: None (occurrence: None)
  Receive Date: 20040204
  Receipt Date: 20040204
  Transmission Date: 20041129
  Serious: No
  Sender: FDA-Public Use
  Company Number: None

PATIENT
  Age: 13 Year
  Sex: Male
  Weight: 87.0906 kg

DRUGS (5)
  1. ABILIFY [Suspect]
     Indication: BIPOLAR DISORDER
     Dosage: 5 MG DAILY ORAL
     Route: 048
     Dates: start: 20031216, end: 20040128
  2. LITHIUM CARBONATE [Concomitant]
  3. OLANZAPINE [Concomitant]
  4. FLUVOXAMINE MALEATE [Concomitant]
  5. GUANFACINE HCL [Concomitant]

REACTIONS (3)
  - LYMPHADENOPATHY [None]
  - PYREXIA [None]
  - RASH GENERALISED [None]
